FAERS Safety Report 17042078 (Version 1)
Quarter: 2019Q4

REPORT INFORMATION
  Report Type: Spontaneous
  Country: GB (occurrence: GB)
  Receive Date: 20191118
  Receipt Date: 20191118
  Transmission Date: 20200122
  Serious: Yes (Hospitalization)
  Sender: FDA-Public Use
  Company Number: GB-TEVA-2019-GB-1137409

PATIENT
  Age: 51 Year
  Sex: Female
  Weight: 66.67 kg

DRUGS (1)
  1. COPAXONE [Suspect]
     Active Substance: GLATIRAMER ACETATE
     Indication: RELAPSING-REMITTING MULTIPLE SCLEROSIS
     Dosage: 20 MILLIGRAM PER DAY
     Route: 058
     Dates: start: 20110221

REACTIONS (3)
  - Erythema [Unknown]
  - Inflammation [Unknown]
  - Administration site cellulitis [Recovering/Resolving]

NARRATIVE: CASE EVENT DATE: 20171218
